FAERS Safety Report 16312865 (Version 2)
Quarter: 2019Q2

REPORT INFORMATION
  Report Type: Spontaneous
  Country: JP (occurrence: JP)
  Receive Date: 20190515
  Receipt Date: 20190517
  Transmission Date: 20190711
  Serious: Yes (Other)
  Sender: FDA-Public Use
  Company Number: PHJP2019JP005134

PATIENT
  Sex: Female

DRUGS (2)
  1. AFINITOR [Suspect]
     Active Substance: EVEROLIMUS
     Indication: PANCREATIC CARCINOMA
     Dosage: 10 MG, UNK
     Route: 065
     Dates: start: 201202, end: 201205
  2. AFINITOR [Suspect]
     Active Substance: EVEROLIMUS
     Indication: METASTASES TO LIVER
     Dosage: 5 MG, UNK
     Route: 065
     Dates: start: 201206, end: 201305

REACTIONS (5)
  - Insulinoma [Unknown]
  - Interstitial lung disease [Recovered/Resolved]
  - Hypoglycaemia [Unknown]
  - Pancreatic carcinoma [Unknown]
  - Malignant neoplasm progression [Unknown]

NARRATIVE: CASE EVENT DATE: 201205
